FAERS Safety Report 7521038-1 (Version None)
Quarter: 2011Q2

REPORT INFORMATION
  Report Type: 
  Country: None (occurrence: None)
  Receive Date: 20110603
  Receipt Date: 20101203
  Transmission Date: 20111010
  Serious: Yes (Hospitalization, Other)
  Sender: FDA-Public Use
  Company Number: US-BAYER-201019474NA

PATIENT
  Age: 36 Year
  Sex: Female
  Weight: 94.785 kg

DRUGS (28)
  1. YASMIN [Suspect]
     Indication: CONTRACEPTION
     Route: 048
     Dates: start: 20050101, end: 20080714
  2. NAPROSYN [Concomitant]
     Indication: PRODUCT USED FOR UNKNOWN INDICATION
     Dosage: UNK
     Dates: start: 20050428
  3. NAPROSYN [Concomitant]
     Dosage: UNK
     Dates: start: 20070105
  4. AMOXICILLIN [Concomitant]
     Dosage: UNK
     Dates: start: 20070330
  5. ACYCLOVIR [Concomitant]
     Indication: PRODUCT USED FOR UNKNOWN INDICATION
     Dosage: 400 MG 3 TIMES DAILY
     Dates: start: 20050101, end: 20100101
  6. ETODOLAC [Concomitant]
     Indication: ANTIINFLAMMATORY THERAPY
  7. SYNTHROID [Concomitant]
     Indication: HYPOTHYROIDISM
     Dosage: UNK
     Dates: start: 19870101, end: 20080101
  8. ACETAMINOPHEN W/ PROPOXYPHENE HCL [Concomitant]
     Dosage: 1 TAB EVERY 5 HOURS AS NEEDED
     Dates: start: 20080425
  9. ETODOLAC [Concomitant]
     Indication: ANALGESIC THERAPY
     Dosage: 200 MG, BID
     Dates: start: 20080601
  10. METRONIDAZOLE [Concomitant]
     Indication: PRODUCT USED FOR UNKNOWN INDICATION
     Dosage: UNK
     Dates: start: 20050629
  11. NITROFURANTOIN [Concomitant]
     Indication: PRODUCT USED FOR UNKNOWN INDICATION
     Dosage: UNK
     Dates: start: 20061211
  12. HYDROCODONE BITARTRATE [Concomitant]
     Indication: PAIN
     Dosage: 10 MG EVERY 4 HOURS
     Dates: start: 20070101, end: 20090101
  13. APAP TAB [Concomitant]
     Indication: PAIN
     Dosage: 325 MG EVERY 4 HOURS
     Dates: start: 20070101, end: 20090101
  14. NAPROSYN [Concomitant]
     Dosage: UNK
     Dates: start: 20080129
  15. MARIJUANA [Concomitant]
     Indication: PRODUCT USED FOR UNKNOWN INDICATION
     Dosage: 3 TIMES WEEKLY
  16. AMOXICILLIN [Concomitant]
     Dosage: UNK
     Dates: start: 20060828
  17. CIPROFLOXACIN [Concomitant]
     Indication: PRODUCT USED FOR UNKNOWN INDICATION
     Dosage: UNK
     Dates: start: 20050308
  18. ACETAMINOPHEN W/ PROPOXYPHENE HCL [Concomitant]
     Indication: PRODUCT USED FOR UNKNOWN INDICATION
     Dosage: 1 TAB EVERY 5 HOURS AS NEEDED
     Dates: start: 20071214
  19. IBUPROFEN [Concomitant]
     Dosage: UNK
     Dates: start: 20070726
  20. CELEBREX [Concomitant]
     Indication: PRODUCT USED FOR UNKNOWN INDICATION
     Dosage: UNK
     Dates: start: 20070228
  21. IBUPROFEN [Concomitant]
     Dosage: UNK
     Dates: start: 20071005
  22. DOXYCYCLINE [Concomitant]
     Indication: PRODUCT USED FOR UNKNOWN INDICATION
     Dosage: UNK
     Dates: start: 20050629
  23. ASCORBIC ACID [Concomitant]
     Indication: PRODUCT USED FOR UNKNOWN INDICATION
     Dosage: UNK
     Dates: start: 20081117
  24. IBUPROFEN [Concomitant]
     Indication: PRODUCT USED FOR UNKNOWN INDICATION
     Dosage: UNK
     Dates: start: 20070426
  25. NAPROSYN [Concomitant]
     Dosage: UNK
     Dates: start: 20081222
  26. AMOXICILLIN [Concomitant]
     Indication: PRODUCT USED FOR UNKNOWN INDICATION
     Dosage: UNK
     Dates: start: 20060718
  27. AMOXICILLIN [Concomitant]
     Dosage: UNK
     Dates: start: 20060801
  28. METRONIDAZOLE [Concomitant]
     Dosage: UNK
     Dates: start: 20070105

REACTIONS (6)
  - PAINFUL RESPIRATION [None]
  - NECK PAIN [None]
  - SINUS TACHYCARDIA [None]
  - DYSPNOEA [None]
  - DEEP VEIN THROMBOSIS [None]
  - PULMONARY EMBOLISM [None]
